FAERS Safety Report 9398338 (Version 1)
Quarter: 2013Q3

REPORT INFORMATION
  Report Type: Report from Study
  Country: ES (occurrence: ES)
  Receive Date: 20130712
  Receipt Date: 20130712
  Transmission Date: 20140515
  Serious: Yes (Death)
  Sender: FDA-Public Use
  Company Number: ES-ABBOTT-13P-144-1116962-00

PATIENT
  Age: 22 Year
  Sex: Male
  Weight: 50 kg

DRUGS (14)
  1. HUMIRA [Suspect]
     Indication: CROHN^S DISEASE
     Route: 058
     Dates: start: 20121022, end: 20121106
  2. HUMIRA [Suspect]
     Dosage: WEEK 2
     Route: 058
     Dates: start: 20121106, end: 20121121
  3. HUMIRA [Suspect]
     Route: 058
     Dates: start: 20121121
  4. METRONIDAZOL [Concomitant]
     Indication: PRODUCT USED FOR UNKNOWN INDICATION
     Dates: start: 20121022
  5. DACORTIN [Concomitant]
     Indication: ANTIINFLAMMATORY THERAPY
     Route: 048
     Dates: start: 20121016
  6. TRANSDERMAL ANALGESIC (NOT SPECIFIED) [Concomitant]
     Indication: PRODUCT USED FOR UNKNOWN INDICATION
     Route: 062
     Dates: start: 20121016
  7. ENANTYUM [Concomitant]
     Indication: ANALGESIC THERAPY
     Route: 048
     Dates: start: 20121024
  8. OMEPRAZOL [Concomitant]
     Indication: GASTRIC DISORDER
     Route: 048
     Dates: start: 20121025
  9. OMEPRAZOL [Concomitant]
     Indication: PROPHYLAXIS
  10. DRUG FOR DEPRESSIVE SYNDROME [Concomitant]
     Indication: DEPRESSION
     Route: 048
     Dates: start: 20121226
  11. TRANXILIUM [Concomitant]
     Indication: ANXIETY
     Dates: start: 20121129
  12. DRUG FOR PAIN [Concomitant]
     Indication: PAIN
  13. NOLOTIL [Concomitant]
     Indication: PRODUCT USED FOR UNKNOWN INDICATION
     Dates: start: 20121129
  14. PECFENT [Concomitant]
     Indication: PAIN
     Route: 045
     Dates: start: 20130221

REACTIONS (1)
  - Acute pulmonary oedema [Fatal]
